FAERS Safety Report 4975457-8 (Version None)
Quarter: 2006Q2

REPORT INFORMATION
  Report Type: 
  Country: None (occurrence: None)
  Receive Date: 20060410
  Receipt Date: 20060328
  Transmission Date: 20061013
  Serious: Yes (Other)
  Sender: FDA-Public Use
  Company Number: SGB1-2006-00167

PATIENT
  Age: 65 Year
  Sex: Female

DRUGS (10)
  1. LANTHANUM CARBONATE(LANTHANUM CARBONATE) TABLET CHEWABLE [Suspect]
     Indication: HYPERPHOSPHATAEMIA
     Dosage: 750MG DAILY, ORAL
     Route: 048
     Dates: start: 20050322, end: 20060328
  2. SELBEX (TEPRENONE) [Concomitant]
  3. TICLOPIDINE HCL [Concomitant]
  4. TINELAC (SENNOSIDE A+B) [Concomitant]
  5. SHINLUCK (SODIUM PICOSULFATE) [Concomitant]
  6. WARFARIN SODIUM [Concomitant]
  7. LANSOPRAZOLE [Concomitant]
  8. NORVASC [Concomitant]
  9. OXAROL (MAXACALCITOL) [Concomitant]
  10. EPOGEN [Concomitant]

REACTIONS (1)
  - GASTRIC CANCER [None]
